FAERS Safety Report 5803541-5 (Version None)
Quarter: 2008Q3

REPORT INFORMATION
  Report Type: 
  Country: None (occurrence: None)
  Receive Date: 20080708
  Receipt Date: 20080630
  Transmission Date: 20090109
  Serious: Yes (Hospitalization)
  Sender: FDA-Public Use
  Company Number: US-ABBOTT-08P-163-0460017-00

PATIENT
  Sex: Female

DRUGS (1)
  1. HUMIRA [Suspect]
     Indication: RHEUMATOID ARTHRITIS
     Route: 058
     Dates: start: 20080529

REACTIONS (4)
  - HAEMATOCHEZIA [None]
  - HYPOTENSION [None]
  - JOINT SWELLING [None]
  - WHITE BLOOD CELL COUNT INCREASED [None]
